FAERS Safety Report 18624194 (Version 1)
Quarter: 2020Q4

REPORT INFORMATION
  Report Type: Spontaneous
  Country: CA (occurrence: CA)
  Receive Date: 20201216
  Receipt Date: 20201216
  Transmission Date: 20210114
  Serious: No
  Sender: FDA-Public Use
  Company Number: CA-LUPIN PHARMACEUTICALS INC.-2020-04374

PATIENT
  Sex: Male

DRUGS (2)
  1. NYSTATIN TOPICAL POWDER [Suspect]
     Active Substance: NYSTATIN
     Indication: ORAL CANDIDIASIS
     Dosage: UNK
     Route: 061
  2. NYSTATIN TOPICAL POWDER [Suspect]
     Active Substance: NYSTATIN
     Indication: DERMATITIS DIAPER

REACTIONS (1)
  - Therapy non-responder [Unknown]
